FAERS Safety Report 13697107 (Version 1)
Quarter: 2017Q2

REPORT INFORMATION
  Report Type: Spontaneous
  Country: US (occurrence: US)
  Receive Date: 20170627
  Receipt Date: 20170627
  Transmission Date: 20170830
  Serious: Yes (Disabling)
  Sender: FDA-Public Use
  Company Number: None

PATIENT
  Age: 38 Year
  Sex: Female
  Weight: 66.6 kg

DRUGS (7)
  1. VERAPAMIL ER [Suspect]
     Active Substance: VERAPAMIL HYDROCHLORIDE
     Indication: VERTIGO
     Dosage: ?          OTHER STRENGTH:MG;QUANTITY:30 TABLET(S);?
     Route: 048
     Dates: start: 20170301, end: 20170313
  2. VITAMIN D [Concomitant]
     Active Substance: CHOLECALCIFEROL
  3. VERAPAMIL ER [Suspect]
     Active Substance: VERAPAMIL HYDROCHLORIDE
     Indication: MIGRAINE
     Dosage: ?          OTHER STRENGTH:MG;QUANTITY:30 TABLET(S);?
     Route: 048
     Dates: start: 20170301, end: 20170313
  4. TYLENOL [Concomitant]
     Active Substance: ACETAMINOPHEN
  5. DEXILANT [Concomitant]
     Active Substance: DEXLANSOPRAZOLE
  6. MEYERS COCKTAIL [Concomitant]
  7. LYRICA [Concomitant]
     Active Substance: PREGABALIN

REACTIONS (8)
  - Asthenia [None]
  - Insomnia [None]
  - Impaired driving ability [None]
  - Hypertension [None]
  - Myalgia [None]
  - Arthralgia [None]
  - Muscular weakness [None]
  - Pain [None]

NARRATIVE: CASE EVENT DATE: 20170305
